FAERS Safety Report 10365339 (Version 5)
Quarter: 2015Q1

REPORT INFORMATION
  Report Type: Spontaneous
  Country: US (occurrence: US)
  Receive Date: 20140806
  Receipt Date: 20150216
  Transmission Date: 20150720
  Serious: No
  Sender: FDA-Public Use
  Company Number: US-PFIZER INC-2014216973

PATIENT
  Age: 61 Year
  Sex: Female

DRUGS (3)
  1. EFFEXOR [Suspect]
     Active Substance: VENLAFAXINE HYDROCHLORIDE
     Dosage: UNK
  2. DANTROLENE [Suspect]
     Active Substance: DANTROLENE
     Dosage: 25 MG, 1X/DAY (ONLY 1 TABLET)
     Dates: start: 20141002
  3. ZANAFLEX [Suspect]
     Active Substance: TIZANIDINE HYDROCHLORIDE
     Dosage: 2 MG TABLET ONE IN MORNING AND ONE AT NIGHT  (2 TABLETS ONLY)
     Dates: start: 20140726

REACTIONS (12)
  - Nervousness [Unknown]
  - Eye swelling [Unknown]
  - Oedema [Unknown]
  - Gait disturbance [Unknown]
  - Malaise [Unknown]
  - Asthenia [Unknown]
  - Drug hypersensitivity [Unknown]
  - General physical health deterioration [Unknown]
  - Pruritus [Unknown]
  - Vision blurred [Unknown]
  - Abdominal pain upper [Unknown]
  - Biliary colic [Unknown]

NARRATIVE: CASE EVENT DATE: 20141002
